FAERS Safety Report 23699626 (Version 3)
Quarter: 2024Q2

REPORT INFORMATION
  Report Type: Report from Study
  Country: CA (occurrence: CA)
  Receive Date: 20240403
  Receipt Date: 20240530
  Transmission Date: 20240716
  Serious: Yes (Other)
  Sender: FDA-Public Use
  Company Number: None

PATIENT

DRUGS (3)
  1. BELIMUMAB [Suspect]
     Active Substance: BELIMUMAB
     Indication: Systemic lupus erythematosus
     Dosage: 10 MG/KG, Q4W
     Route: 042
     Dates: start: 20190917
  2. BELIMUMAB [Suspect]
     Active Substance: BELIMUMAB
     Dosage: 1170 MG, MO
     Dates: start: 20190917
  3. BELIMUMAB [Suspect]
     Active Substance: BELIMUMAB
     Dosage: 1200 MG, Q4W
     Dates: start: 20190917

REACTIONS (9)
  - Surgery [Unknown]
  - Nausea [Not Recovered/Not Resolved]
  - Illness [Unknown]
  - Symptom recurrence [Unknown]
  - Pain [Not Recovered/Not Resolved]
  - Back pain [Not Recovered/Not Resolved]
  - Gait disturbance [Not Recovered/Not Resolved]
  - Somnolence [Not Recovered/Not Resolved]
  - Therapy partial responder [Unknown]

NARRATIVE: CASE EVENT DATE: 20240301
